APPROVED DRUG PRODUCT: FORTEO
Active Ingredient: TERIPARATIDE
Strength: 0.75MG/3ML (0.25MG/ML)
Dosage Form/Route: SOLUTION;SUBCUTANEOUS
Application: N021318 | Product #001
Applicant: ELI LILLY AND CO
Approved: Nov 26, 2002 | RLD: No | RS: No | Type: DISCN